FAERS Safety Report 7910628 (Version 2)
Quarter: 2017Q2

REPORT INFORMATION
  Report Type: Spontaneous
  Country: GB (occurrence: GB)
  Receive Date: 20110422
  Receipt Date: 20170413
  Transmission Date: 20170830
  Serious: Yes (Hospitalization)
  Sender: FDA-Public Use
  Company Number: GB-PFIZER INC-2011086024

PATIENT
  Age: 21 Year
  Sex: Female

DRUGS (5)
  1. MIFEGYNE [Suspect]
     Active Substance: MIFEPRISTONE
     Indication: ABORTION INDUCED
     Dosage: 200 MG, 1X/DAY
     Route: 048
     Dates: start: 20100621, end: 20100621
  2. MIFEGYNE [Suspect]
     Active Substance: MIFEPRISTONE
     Dosage: 600 MG, UNK
     Route: 048
     Dates: start: 20100626
  3. MISOPROSTOL. [Suspect]
     Active Substance: MISOPROSTOL
     Indication: ABORTION INDUCED
     Dosage: 4000 UG, UNK
     Route: 067
     Dates: start: 20100623, end: 20100623
  4. GEMEPROST [Suspect]
     Active Substance: GEMEPROST
     Dosage: 1 MG, DAILY (10 DOSES PER DAY)
     Route: 067
     Dates: start: 20100628
  5. VERAPAMIL [Concomitant]
     Active Substance: VERAPAMIL HYDROCHLORIDE
     Dosage: UNK
     Route: 048

REACTIONS (5)
  - Inappropriate schedule of drug administration [Unknown]
  - Induced abortion failed [Unknown]
  - Incorrect route of drug administration [Unknown]
  - Incorrect dose administered [Unknown]
  - Drug ineffective for unapproved indication [Unknown]

NARRATIVE: CASE EVENT DATE: 201006
